FAERS Safety Report 4558665-X (Version None)
Quarter: 2005Q1

REPORT INFORMATION
  Report Type: 
  Country: None (occurrence: None)
  Receive Date: 20050121
  Receipt Date: 20050121
  Transmission Date: 20050727
  Serious: Yes (Hospitalization)
  Sender: FDA-Public Use
  Company Number: None

PATIENT
  Age: 18 Year
  Sex: Female
  Weight: 77.1115 kg

DRUGS (2)
  1. ORTHO EVRA [Suspect]
     Indication: MUSCLE SPASMS
     Dosage: APPLIED TOPICALLY
     Route: 061
     Dates: start: 20040801, end: 20041209
  2. BEXTRA [Suspect]
     Indication: DYSMENORRHOEA
     Dosage: 10-20 MG PO BID X 7 DAYS PRN MENTSTRAL CRAMPS
     Route: 048
     Dates: start: 20040901, end: 20041101

REACTIONS (2)
  - DEEP VEIN THROMBOSIS [None]
  - SUBCLAVIAN VEIN THROMBOSIS [None]
